FAERS Safety Report 7721294-0 (Version None)
Quarter: 2011Q3

REPORT INFORMATION
  Report Type: 
  Country: None (occurrence: None)
  Receive Date: 20110831
  Receipt Date: 20110824
  Transmission Date: 20111222
  Serious: Yes (Other)
  Sender: FDA-Public Use
  Company Number: PHHY2011JP76072

PATIENT

DRUGS (1)
  1. ZOMETA [Suspect]
     Dosage: UNK UKN, UNK
     Route: 041

REACTIONS (3)
  - OSTEONECROSIS [None]
  - OSTEOMYELITIS [None]
  - FRACTURE [None]
